FAERS Safety Report 18815777 (Version 1)
Quarter: 2021Q1

REPORT INFORMATION
  Report Type: Spontaneous
  Country: US (occurrence: US)
  Receive Date: 20210130
  Receipt Date: 20210130
  Transmission Date: 20210419
  Serious: No
  Sender: FDA-Public Use
  Company Number: None

PATIENT
  Age: 70 Year
  Sex: Male
  Weight: 90 kg

DRUGS (1)
  1. NETARSUDIL (NETARSUDIL 0.02% SOLN, OPH) [Suspect]
     Active Substance: NETARSUDIL
     Indication: GLAUCOMA
     Route: 047
     Dates: start: 20200801, end: 20201026

REACTIONS (3)
  - Swelling of eyelid [None]
  - Lacrimation increased [None]
  - Abnormal sensation in eye [None]

NARRATIVE: CASE EVENT DATE: 20201026
